FAERS Safety Report 20644279 (Version 1)
Quarter: 2022Q1

REPORT INFORMATION
  Report Type: Spontaneous
  Country: US (occurrence: US)
  Receive Date: 20220328
  Receipt Date: 20220328
  Transmission Date: 20220423
  Serious: No
  Sender: FDA-Public Use
  Company Number: US-Scigen-2022SCSPO00180

PATIENT

DRUGS (1)
  1. BUPROPION HYDROCHLORIDE [Suspect]
     Active Substance: BUPROPION HYDROCHLORIDE
     Indication: Depression
     Route: 065

REACTIONS (3)
  - Product odour abnormal [Unknown]
  - Drug ineffective [Unknown]
  - Tremor [Unknown]

NARRATIVE: CASE EVENT DATE: 20220302
